FAERS Safety Report 8472272-8 (Version None)
Quarter: 2012Q2

REPORT INFORMATION
  Report Type: 
  Country: None (occurrence: None)
  Receive Date: 20120627
  Receipt Date: 20120621
  Transmission Date: 20120825
  Serious: Yes (Death, Other)
  Sender: FDA-Public Use
  Company Number: IT-JNJFOC-20120612110

PATIENT

DRUGS (10)
  1. DOXORUBICIN HCL [Suspect]
     Indication: DIFFUSE LARGE B-CELL LYMPHOMA
     Dosage: MINI-CHOP-21
     Route: 042
  2. DOXORUBICIN HCL [Suspect]
     Dosage: R-CDOP-21
     Route: 042
  3. VINCRISTINE [Suspect]
     Indication: DIFFUSE LARGE B-CELL LYMPHOMA
     Dosage: ON DAY 1 (MINI-CHOP-21)
     Route: 065
  4. RITUXIMAB [Suspect]
     Indication: DIFFUSE LARGE B-CELL LYMPHOMA
     Dosage: ON DAY 1 FOR EACH OF THE 6 CYCLES (R-CHOP-21 AND R-CDOP-21)
     Route: 065
  5. DOXORUBICIN HCL [Suspect]
     Dosage: R-CHOP-21
     Route: 042
  6. CYCLOPHOSPHAMIDE [Suspect]
     Indication: DIFFUSE LARGE B-CELL LYMPHOMA
     Dosage: R-CHOP-21 AND R-CDOP-21
     Route: 065
  7. VINCRISTINE [Suspect]
     Dosage: ON DAY 1 (R-CHOP-21 AND R-CDOP-21)
     Route: 065
  8. PREDNISONE TAB [Suspect]
     Indication: DIFFUSE LARGE B-CELL LYMPHOMA
     Dosage: ON DAYS 1-5 (MINI-CHOP-21)
     Route: 065
  9. CYCLOPHOSPHAMIDE [Suspect]
     Dosage: MINI-CHOP-21
     Route: 065
  10. PREDNISONE TAB [Suspect]
     Dosage: ON DAYS 1-5 (R-CHOP-21 AND R-CDOP-21)
     Route: 065

REACTIONS (7)
  - INFECTION [None]
  - WHITE BLOOD CELL COUNT ABNORMAL [None]
  - NEUROTOXICITY [None]
  - HAEMOGLOBIN ABNORMAL [None]
  - DIFFUSE LARGE B-CELL LYMPHOMA [None]
  - PALMAR-PLANTAR ERYTHRODYSAESTHESIA SYNDROME [None]
  - MUCOSAL INFLAMMATION [None]
